FAERS Safety Report 6168901-4 (Version None)
Quarter: 2009Q2

REPORT INFORMATION
  Report Type: 
  Country: None (occurrence: None)
  Receive Date: 20090424
  Receipt Date: 20090424
  Transmission Date: 20091009
  Serious: Yes (Hospitalization)
  Sender: FDA-Public Use
  Company Number: None

PATIENT
  Sex: Male
  Weight: 94.3482 kg

DRUGS (2)
  1. VANCOMYCIN [Suspect]
     Indication: PNEUMONIA STAPHYLOCOCCAL
     Dosage: 1750 MG EVERY 12 HOURS IV DRIP
     Route: 041
     Dates: start: 20090304, end: 20090315
  2. DEXTROSE 5% [Suspect]
     Dosage: 250ML EVERY 12 HOURS IV DRIP
     Route: 041
     Dates: start: 20090304, end: 20090315

REACTIONS (5)
  - BLOOD CREATININE INCREASED [None]
  - BLOOD UREA INCREASED [None]
  - DRUG LEVEL INCREASED [None]
  - PRURITUS [None]
  - RASH [None]
